FAERS Safety Report 10059181 (Version 1)
Quarter: 2014Q2

REPORT INFORMATION
  Report Type: Spontaneous
  Country: IT (occurrence: IT)
  Receive Date: 20140404
  Receipt Date: 20140404
  Transmission Date: 20141212
  Serious: Yes (Hospitalization)
  Sender: FDA-Public Use
  Company Number: IT-PFIZER INC-2014092344

PATIENT
  Age: 8 Year
  Sex: Female

DRUGS (4)
  1. SALAZOPYRIN EN [Suspect]
     Indication: COLITIS ULCERATIVE
     Dosage: 2000 MG, DAILY
     Route: 048
     Dates: start: 20140207, end: 20140305
  2. DELTACORTENE [Concomitant]
     Dosage: 12.5 MG, UNK
     Route: 048
  3. FOLINA [Concomitant]
  4. CALISVIT [Concomitant]

REACTIONS (2)
  - Urticaria [Recovering/Resolving]
  - Face oedema [Recovering/Resolving]
